FAERS Safety Report 17672052 (Version 3)
Quarter: 2020Q2

REPORT INFORMATION
  Report Type: Spontaneous
  Country: IN (occurrence: IN)
  Receive Date: 20200415
  Receipt Date: 20200618
  Transmission Date: 20200713
  Serious: Yes (Hospitalization, Other)
  Sender: FDA-Public Use
  Company Number: IN-PFIZER INC-2019234587

PATIENT
  Age: 66 Year
  Sex: Female

DRUGS (3)
  1. PALBACE [Suspect]
     Active Substance: PALBOCICLIB
     Dosage: 100 MG
     Route: 048
  2. FULVESTRANT. [Concomitant]
     Active Substance: FULVESTRANT
     Dosage: UNK
  3. PALBACE [Suspect]
     Active Substance: PALBOCICLIB
     Indication: BREAST CANCER METASTATIC
     Dosage: 125 MG, 1X/DAY
     Route: 048
     Dates: start: 20190411

REACTIONS (14)
  - Scratch [Unknown]
  - Hyperchlorhydria [Unknown]
  - Fall [Recovering/Resolving]
  - Hypoaesthesia [Unknown]
  - Neoplasm progression [Unknown]
  - Lower limb fracture [Recovering/Resolving]
  - Blood count abnormal [Unknown]
  - Pain in extremity [Unknown]
  - Platelet count decreased [Unknown]
  - Diarrhoea [Recovered/Resolved]
  - Gait disturbance [Unknown]
  - Constipation [Recovered/Resolved]
  - Musculoskeletal stiffness [Unknown]
  - Asthenia [Recovering/Resolving]

NARRATIVE: CASE EVENT DATE: 2019
